FAERS Safety Report 8356098-1 (Version None)
Quarter: 2012Q2

REPORT INFORMATION
  Report Type: 
  Country: None (occurrence: None)
  Receive Date: 20120510
  Receipt Date: 20120502
  Transmission Date: 20120825
  Serious: Yes (Hospitalization)
  Sender: FDA-Public Use
  Company Number: DKLU1078251

PATIENT
  Age: 34 Year
  Sex: Female

DRUGS (5)
  1. CARBAMAZEPINE [Suspect]
     Indication: EPILEPSY
     Dosage: 400 MG MILLIGRAM (S), 3 IN 1 D, GASTROENTERAL USE  ^MANY YEARS AGO^
  2. VIMPAT [Concomitant]
  3. KEPPRA [Concomitant]
  4. ONFI [Suspect]
     Indication: EPILEPSY
     Dosage: GASTROENTERAL USE
     Dates: start: 20120216
  5. VALPROIC ACID [Concomitant]

REACTIONS (4)
  - THROMBOCYTOPENIA [None]
  - PNEUMONIA ASPIRATION [None]
  - CONVULSION [None]
  - WHITE BLOOD CELL COUNT DECREASED [None]
